FAERS Safety Report 6882912-2 (Version None)
Quarter: 2010Q3

REPORT INFORMATION
  Report Type: 
  Country: None (occurrence: None)
  Receive Date: 20100702
  Receipt Date: 20100121
  Transmission Date: 20110219
  Serious: Yes (Other)
  Sender: FDA-Public Use
  Company Number: 2008075460

PATIENT
  Sex: Female
  Weight: 56 kg

DRUGS (4)
  1. ZOLOFT [Suspect]
     Dosage: 50 MG, 1X/DAY
     Dates: start: 20040101
  2. ZOLEDRONIC ACID [Suspect]
  3. TOPAMAX [Concomitant]
  4. PHENOBARBITAL TAB [Concomitant]

REACTIONS (6)
  - CONVULSION [None]
  - DEPRESSION [None]
  - DRUG INEFFECTIVE [None]
  - INSOMNIA [None]
  - NAUSEA [None]
  - PANIC ATTACK [None]
